FAERS Safety Report 18061750 (Version 1)
Quarter: 2020Q3

REPORT INFORMATION
  Report Type: Report from Study
  Country: US (occurrence: US)
  Receive Date: 20200723
  Receipt Date: 20200723
  Transmission Date: 20201103
  Serious: Yes (Other)
  Sender: FDA-Public Use
  Company Number: US-MYLANLABS-2020M1066954

PATIENT
  Sex: Female

DRUGS (2)
  1. BERZOSERTIB [Suspect]
     Active Substance: BERZOSERTIB
     Indication: OVARIAN CANCER
     Dosage: 210 MILLIGRAM/SQ. METER, ADMINISTERED DURING 1H ON DAY 2 AND DAY 9 OF EACH 21?DAY CYCLE
     Route: 042
  2. GEMCITABINE. [Suspect]
     Active Substance: GEMCITABINE
     Indication: OVARIAN CANCER
     Dosage: 1000 MILLIGRAM/SQ. METER, ADMINISTERED DURING 30 MINUTES ON DAY 1 AND DAY 8 OF EACH 21?DAY CYCLE
     Route: 042

REACTIONS (1)
  - Small intestinal obstruction [Unknown]
